FAERS Safety Report 12764313 (Version 1)
Quarter: 2016Q3

REPORT INFORMATION
  Report Type: Spontaneous
  Country: US (occurrence: US)
  Receive Date: 20160920
  Receipt Date: 20160920
  Transmission Date: 20161109
  Serious: No
  Sender: FDA-Public Use
  Company Number: US-PFIZER INC-2016436437

PATIENT
  Sex: Female

DRUGS (2)
  1. LYRICA [Suspect]
     Active Substance: PREGABALIN
     Dosage: 1 DF, 2X/DAY (ONE TABLET TWICE DAILY)
  2. LYRICA [Suspect]
     Active Substance: PREGABALIN
     Dosage: 2 DF, 2X/DAY (TWO TABLETS TWICE DAILY)

REACTIONS (1)
  - Malaise [Unknown]
